FAERS Safety Report 24362874 (Version 1)
Quarter: 2024Q3

REPORT INFORMATION
  Report Type: Spontaneous
  Country: US (occurrence: None)
  Receive Date: 20240924
  Receipt Date: 20240924
  Transmission Date: 20241017
  Serious: Yes (Life-Threatening, Hospitalization)
  Sender: Public
  Company Number: None

PATIENT
  Age: 37 Year
  Sex: Female
  Weight: 81 kg

DRUGS (4)
  1. TOPIRAMATE [Suspect]
     Active Substance: TOPIRAMATE
     Indication: Weight decreased
     Dosage: FREQUENCY : DAILY;?
     Route: 048
     Dates: start: 20231210, end: 20231214
  2. SYNTHROID [Concomitant]
     Active Substance: LEVOTHYROXINE SODIUM
  3. WELLBUTRIN [Concomitant]
     Active Substance: BUPROPION HYDROCHLORIDE
  4. ZYRTEC [Concomitant]
     Active Substance: CETIRIZINE HYDROCHLORIDE

REACTIONS (13)
  - Tachycardia [None]
  - Flushing [None]
  - Chills [None]
  - Tremor [None]
  - Anxiety [None]
  - Intentional dose omission [None]
  - Dyspnoea [None]
  - Urticaria [None]
  - Bronchospasm [None]
  - Angioedema [None]
  - Pharyngeal swelling [None]
  - Oxygen saturation decreased [None]
  - Anaphylactic reaction [None]

NARRATIVE: CASE EVENT DATE: 20231216
